FAERS Safety Report 7277523-3 (Version None)
Quarter: 2011Q1

REPORT INFORMATION
  Report Type: 
  Country: None (occurrence: None)
  Receive Date: 20110202
  Receipt Date: 20110202
  Transmission Date: 20110831
  Serious: No
  Sender: FDA-Public Use
  Company Number: None

PATIENT
  Age: 24 Year
  Sex: Female
  Weight: 58.9676 kg

DRUGS (1)
  1. ACCUTANE [Suspect]

REACTIONS (8)
  - FOOD ALLERGY [None]
  - MYOFASCIAL PAIN SYNDROME [None]
  - QUALITY OF LIFE DECREASED [None]
  - VISUAL IMPAIRMENT [None]
  - ARTHRALGIA [None]
  - PAIN [None]
  - MIGRAINE [None]
  - IMPAIRED WORK ABILITY [None]
